FAERS Safety Report 16149786 (Version 1)
Quarter: 2019Q2

REPORT INFORMATION
  Report Type: Spontaneous
  Country: IT (occurrence: IT)
  Receive Date: 20190402
  Receipt Date: 20190402
  Transmission Date: 20190711
  Serious: Yes (Death, Other)
  Sender: FDA-Public Use
  Company Number: IT-MYLANLABS-2019M1028411

PATIENT
  Age: 48 Year
  Sex: Male

DRUGS (4)
  1. PROCARBAZINE [Suspect]
     Active Substance: PROCARBAZINE
     Indication: HODGKIN^S DISEASE
     Dosage: UNK
  2. MUSTARGEN                          /00091501/ [Suspect]
     Active Substance: MECHLORETHAMINE
     Indication: HODGKIN^S DISEASE
     Dosage: UNK
  3. VINCRISTINE SULFATE. [Suspect]
     Active Substance: VINCRISTINE SULFATE
     Indication: HODGKIN^S DISEASE
     Dosage: UNK
  4. PREDNISONE. [Suspect]
     Active Substance: PREDNISONE
     Indication: HODGKIN^S DISEASE
     Dosage: UNK

REACTIONS (3)
  - Cytogenetic abnormality [Fatal]
  - Acute leukaemia [Fatal]
  - Pancytopenia [Fatal]
